FAERS Safety Report 15312745 (Version 2)
Quarter: 2018Q3

REPORT INFORMATION
  Report Type: Spontaneous
  Country: FR (occurrence: FR)
  Receive Date: 20180823
  Receipt Date: 20180907
  Transmission Date: 20181010
  Serious: Yes (Other)
  Sender: FDA-Public Use
  Company Number: FR-009507513-1807FRA006008

PATIENT
  Age: 73 Year
  Sex: Male

DRUGS (8)
  1. APROVEL [Interacting]
     Active Substance: IRBESARTAN
     Dosage: UNK
     Route: 065
  2. APROVEL [Interacting]
     Active Substance: IRBESARTAN
     Dosage: UNK
     Route: 065
  3. JANUMET [Suspect]
     Active Substance: METFORMIN HYDROCHLORIDE\SITAGLIPTIN PHOSPHATE
     Indication: TYPE 2 DIABETES MELLITUS
     Dosage: 2 DF, DAILY
     Route: 048
     Dates: start: 20180326, end: 20180528
  4. TENORETIC [Concomitant]
     Active Substance: ATENOLOL\CHLORTHALIDONE
     Dosage: UNK
     Route: 048
     Dates: start: 2003
  5. IRBESARTAN. [Concomitant]
     Active Substance: IRBESARTAN
     Dosage: UNK
     Dates: start: 2017
  6. ZYMAD [Concomitant]
     Active Substance: CHOLECALCIFEROL
  7. VESICARE [Concomitant]
     Active Substance: SOLIFENACIN SUCCINATE
  8. INEXIUM (ESOMEPRAZOLE MAGNESIUM) [Concomitant]
     Active Substance: ESOMEPRAZOLE MAGNESIUM
     Dosage: UNK UNK, UNK
     Route: 065
     Dates: start: 2003

REACTIONS (6)
  - Drug interaction [Unknown]
  - Polyarthritis [Unknown]
  - Shoulder arthroplasty [Unknown]
  - Tenoplasty [Unknown]
  - Angioedema [Unknown]
  - Seronegative arthritis [Unknown]

NARRATIVE: CASE EVENT DATE: 20180406
